APPROVED DRUG PRODUCT: CEFUROXIME SODIUM IN PLASTIC CONTAINER
Active Ingredient: CEFUROXIME SODIUM
Strength: EQ 225GM BASE/VIAL
Dosage Form/Route: INJECTABLE;INJECTION
Application: A065251 | Product #002
Applicant: SAMSON MEDICAL TECHNOLOGIES LLC
Approved: Dec 30, 2009 | RLD: No | RS: No | Type: DISCN